FAERS Safety Report 6428900-1 (Version None)
Quarter: 2009Q4

REPORT INFORMATION
  Report Type: 
  Country: None (occurrence: None)
  Receive Date: 20091104
  Receipt Date: 20091104
  Transmission Date: 20100525
  Serious: No
  Sender: FDA-Public Use
  Company Number: None

PATIENT
  Age: 9 Month
  Sex: Male
  Weight: 9.5255 kg

DRUGS (2)
  1. TAMIFLU [Suspect]
     Indication: INFLUENZA
     Dosage: 2 ML TWICE A DAY, PO
     Route: 048
     Dates: start: 20091025, end: 20091028
  2. TAMIFLU [Suspect]
     Indication: PNEUMONIA
     Dosage: 2 ML TWICE A DAY, PO
     Route: 048
     Dates: start: 20091025, end: 20091028

REACTIONS (1)
  - RASH PAPULAR [None]
